FAERS Safety Report 8169767-3 (Version None)
Quarter: 2012Q1

REPORT INFORMATION
  Report Type: 
  Country: None (occurrence: None)
  Receive Date: 20120228
  Receipt Date: 20120221
  Transmission Date: 20120608
  Serious: Yes (Hospitalization)
  Sender: FDA-Public Use
  Company Number: DE-UCBSA-002152

PATIENT
  Age: 19 Year
  Sex: Female

DRUGS (8)
  1. PREGABALIN [Concomitant]
     Route: 048
     Dates: start: 20091012
  2. CLOBAZAM [Concomitant]
     Route: 048
     Dates: start: 20091016
  3. CLOBAZAM [Concomitant]
     Indication: EPILEPSY
     Route: 048
     Dates: start: 20091008
  4. VIMPAT [Suspect]
     Indication: EPILEPSY
     Route: 048
     Dates: start: 20090915, end: 20091007
  5. PREGABALIN [Concomitant]
     Route: 048
     Dates: start: 20091009
  6. ESLICARBAZEPINE [Concomitant]
     Indication: EPILEPSY
     Route: 048
     Dates: start: 20091008
  7. PREGABALIN [Concomitant]
     Indication: EPILEPSY
     Route: 048
     Dates: start: 20090915, end: 20091008
  8. ESLICARBAZEPINE [Concomitant]
     Route: 048
     Dates: start: 20091020

REACTIONS (1)
  - CONVULSION [None]
